FAERS Safety Report 12990531 (Version 1)
Quarter: 2016Q4

REPORT INFORMATION
  Report Type: Spontaneous
  Country: US (occurrence: US)
  Receive Date: 20161130
  Receipt Date: 20161130
  Transmission Date: 20170207
  Serious: Yes (Other)
  Sender: FDA-Public Use
  Company Number: None

PATIENT
  Age: 41 Year
  Sex: Female
  Weight: 76.5 kg

DRUGS (4)
  1. AZITHROMYCIN TABLETS USP 250 MG TEVA PHARMACEUTICAL USA, INC. [Suspect]
     Active Substance: AZITHROMYCIN
     Indication: TONSILLITIS
     Dosage: ?          QUANTITY:1 TABLET(S);?
     Route: 048
     Dates: start: 20161128, end: 20161129
  2. LEMON GRASS [Concomitant]
  3. AZITHROMYCIN TABLETS USP 250 MG TEVA PHARMACEUTICAL USA, INC. [Suspect]
     Active Substance: AZITHROMYCIN
     Indication: PHARYNGITIS STREPTOCOCCAL
     Dosage: ?          QUANTITY:1 TABLET(S);?
     Route: 048
     Dates: start: 20161128, end: 20161129
  4. GINGER. [Concomitant]
     Active Substance: GINGER

REACTIONS (8)
  - Chest pain [None]
  - Insomnia [None]
  - Menorrhagia [None]
  - Dizziness [None]
  - Palpitations [None]
  - Lymphadenopathy [None]
  - Fatigue [None]
  - Headache [None]

NARRATIVE: CASE EVENT DATE: 20161129
